FAERS Safety Report 10673012 (Version 2)
Quarter: 2015Q2

REPORT INFORMATION
  Report Type: Spontaneous
  Country: US (occurrence: US)
  Receive Date: 20141223
  Receipt Date: 20150413
  Transmission Date: 20150821
  Serious: No
  Sender: FDA-Public Use
  Company Number: US-ALLERGAN-1425825US

PATIENT
  Age: 82 Year
  Sex: Female
  Weight: 56.69 kg

DRUGS (6)
  1. COMBIGAN[R] [Suspect]
     Active Substance: BRIMONIDINE TARTRATE\TIMOLOL MALEATE
     Indication: INTRAOCULAR PRESSURE INCREASED
     Dosage: 2 DROPS PER DAY RIGHT EYE/ 1 DROP 2X PER DAY
     Route: 047
     Dates: start: 20130218
  2. CRESTOR [Concomitant]
     Active Substance: ROSUVASTATIN CALCIUM
     Indication: BLOOD CHOLESTEROL INCREASED
     Dosage: 5 MG PER DAY
     Dates: start: 2011
  3. DILTIAZEM [Concomitant]
     Active Substance: DILTIAZEM
     Indication: HYPERTENSION
     Dosage: 100 MG PER DAY
     Dates: start: 201501
  4. ASPIRIN. [Concomitant]
     Active Substance: ASPIRIN
     Dosage: 80 MG PER DAY
  5. COMBIGAN[R] [Suspect]
     Active Substance: BRIMONIDINE TARTRATE\TIMOLOL MALEATE
     Indication: CORNEAL TRANSPLANT
  6. DURCEOL [Concomitant]
     Indication: CORNEAL TRANSPLANT
     Dosage: 1 DROP PER DAY
     Route: 047

REACTIONS (1)
  - No adverse event [Unknown]
